FAERS Safety Report 17469553 (Version 1)
Quarter: 2020Q1

REPORT INFORMATION
  Report Type: Spontaneous
  Country: GB (occurrence: GB)
  Receive Date: 20200227
  Receipt Date: 20200227
  Transmission Date: 20200409
  Serious: Yes (Death, Hospitalization, Other)
  Sender: FDA-Public Use
  Company Number: GB-MYLANLABS-2020M1020903

PATIENT
  Age: 70 Year
  Sex: Female
  Weight: 61.45 kg

DRUGS (3)
  1. KISQALI [Suspect]
     Active Substance: RIBOCICLIB
     Indication: BREAST CANCER METASTATIC
     Dosage: 600 MG, UNK
     Route: 048
     Dates: start: 20180308, end: 20180319
  2. DEXAMETHASONE. [Concomitant]
     Active Substance: DEXAMETHASONE
     Indication: RADIATION ASSOCIATED PAIN
     Dosage: UNK
     Route: 048
  3. LETROZOLE. [Suspect]
     Active Substance: LETROZOLE
     Indication: PRODUCT USED FOR UNKNOWN INDICATION
     Dosage: 2.5 MG, UNK
     Route: 048
     Dates: start: 20180308

REACTIONS (18)
  - Prothrombin time prolonged [Unknown]
  - Blood urea increased [Unknown]
  - Blood calcium increased [Unknown]
  - Blood phosphorus increased [Unknown]
  - Neutropenia [Not Recovered/Not Resolved]
  - Blood creatinine increased [Unknown]
  - Alanine aminotransferase increased [Unknown]
  - Neutropenic sepsis [Unknown]
  - Bone marrow failure [Fatal]
  - Pneumonia [Fatal]
  - Dyspnoea [Fatal]
  - Blood albumin increased [Unknown]
  - Activated partial thromboplastin time prolonged [Unknown]
  - Adjusted calcium increased [Unknown]
  - International normalised ratio increased [Unknown]
  - Diarrhoea [Not Recovered/Not Resolved]
  - Malaise [Fatal]
  - Blood fibrinogen increased [Unknown]

NARRATIVE: CASE EVENT DATE: 20180315
